FAERS Safety Report 7346579-1 (Version None)
Quarter: 2011Q1

REPORT INFORMATION
  Report Type: 
  Country: None (occurrence: None)
  Receive Date: 20110311
  Receipt Date: 20110305
  Transmission Date: 20110831
  Serious: Yes (Other)
  Sender: FDA-Public Use
  Company Number: US-SANOFI-AVENTIS-2011SA014198

PATIENT
  Age: 57 Year
  Sex: Female

DRUGS (2)
  1. ALLEGRA-D - SLOW RELEASE [Suspect]
     Route: 048
     Dates: start: 19990101
  2. METFORMIN [Suspect]
     Route: 048

REACTIONS (3)
  - GOITRE [None]
  - THYROID CANCER [None]
  - LIVER INJURY [None]
